FAERS Safety Report 11034831 (Version 4)
Quarter: 2015Q3

REPORT INFORMATION
  Report Type: Spontaneous
  Country: US (occurrence: US)
  Receive Date: 20150415
  Receipt Date: 20150720
  Transmission Date: 20151125
  Serious: No
  Sender: FDA-Public Use
  Company Number: US-GILEAD-2015-0147805

PATIENT
  Age: 64 Year
  Sex: Female

DRUGS (1)
  1. HARVONI [Suspect]
     Active Substance: LEDIPASVIR\SOFOSBUVIR
     Indication: HEPATITIS C
     Dosage: 1 DF, QD
     Dates: start: 20150310, end: 20150612

REACTIONS (7)
  - Fatigue [Unknown]
  - Nausea [Unknown]
  - Restlessness [Unknown]
  - Headache [Unknown]
  - Abdominal discomfort [Unknown]
  - Pruritus [Unknown]
  - Rash [Recovered/Resolved]
